FAERS Safety Report 14618627 (Version 1)
Quarter: 2018Q1

REPORT INFORMATION
  Report Type: Spontaneous
  Country: AT (occurrence: AT)
  Receive Date: 20180309
  Receipt Date: 20180309
  Transmission Date: 20180509
  Serious: Yes (Other)
  Sender: FDA-Public Use
  Company Number: AT-ASTRAZENECA-2018SE28438

PATIENT
  Sex: Male

DRUGS (4)
  1. SANDIMMUN [Interacting]
     Active Substance: CYCLOSPORINE
     Route: 065
  2. BRILIQUE [Suspect]
     Active Substance: TICAGRELOR
     Route: 048
  3. MYCOPHENOLATE MOFETIL. [Concomitant]
     Active Substance: MYCOPHENOLATE MOFETIL
     Dosage: 500.0MG UNKNOWN
  4. ASA [Concomitant]
     Active Substance: ASPIRIN

REACTIONS (2)
  - Blood creatinine increased [Unknown]
  - Drug interaction [Unknown]
